FAERS Safety Report 6461977-6 (Version None)
Quarter: 2009Q4

REPORT INFORMATION
  Report Type: 
  Country: None (occurrence: None)
  Receive Date: 20091123
  Receipt Date: 20091109
  Transmission Date: 20100525
  Serious: Yes (Death, Hospitalization)
  Sender: FDA-Public Use
  Company Number: 2009AC000398

PATIENT
  Sex: Female

DRUGS (25)
  1. DIGOXIN [Suspect]
     Dosage: PO
     Route: 048
  2. ATENOLOL [Concomitant]
  3. LASIX [Concomitant]
  4. ASPIRIN [Concomitant]
  5. AMLODIPINE [Concomitant]
  6. POTASSIUM [Concomitant]
  7. DIOVAN [Concomitant]
  8. PROTONIX [Concomitant]
  9. HUMALOG [Concomitant]
  10. LANTUS [Concomitant]
  11. GUAIFENESIN [Concomitant]
  12. FLAGYL [Concomitant]
  13. LEVAQUIN [Concomitant]
  14. CATAPRES [Concomitant]
  15. INDOMETHACIN [Concomitant]
  16. DYAZIDE [Concomitant]
  17. NORVASC [Concomitant]
  18. NITROFURANTOIN [Concomitant]
  19. NORVASC [Concomitant]
  20. ATENOLOL [Concomitant]
  21. LASIX [Concomitant]
  22. K-DUR [Concomitant]
  23. NITROFURANTOIN [Concomitant]
  24. HUMALOG [Concomitant]
  25. LANTUS [Concomitant]

REACTIONS (35)
  - ANAEMIA [None]
  - ARTERIOSCLEROSIS [None]
  - ASTHENIA [None]
  - ATRIAL FIBRILLATION [None]
  - ATRIOVENTRICULAR BLOCK [None]
  - BLOOD GLUCOSE DECREASED [None]
  - CARDIAC FAILURE CONGESTIVE [None]
  - CARDIOMEGALY [None]
  - CORONARY ARTERY DISEASE [None]
  - DIASTOLIC DYSFUNCTION [None]
  - DYSPHAGIA [None]
  - ECONOMIC PROBLEM [None]
  - FATIGUE [None]
  - GASTROOESOPHAGEAL REFLUX DISEASE [None]
  - HYPERTENSION [None]
  - HYPOGLYCAEMIA [None]
  - IMPAIRED HEALING [None]
  - LEG AMPUTATION [None]
  - MULTIPLE INJURIES [None]
  - OSTEOARTHRITIS [None]
  - OSTEOMYELITIS [None]
  - PAIN [None]
  - PERIPHERAL VASCULAR DISORDER [None]
  - PLEURAL EFFUSION [None]
  - PNEUMONIA ASPIRATION [None]
  - PULMONARY HYPERTENSION [None]
  - RENAL FAILURE CHRONIC [None]
  - RESPIRATORY ARREST [None]
  - SKIN ULCER [None]
  - SUPRAVENTRICULAR TACHYCARDIA [None]
  - SURGERY [None]
  - TYPE 2 DIABETES MELLITUS [None]
  - ULCER [None]
  - URINARY TRACT INFECTION ENTEROCOCCAL [None]
  - VENOUS PRESSURE JUGULAR INCREASED [None]
